FAERS Safety Report 4639087-X (Version None)
Quarter: 2005Q2

REPORT INFORMATION
  Report Type: 
  Country: None (occurrence: None)
  Receive Date: 20050418
  Receipt Date: 20050406
  Transmission Date: 20051028
  Serious: Yes (Other)
  Sender: FDA-Public Use
  Company Number: 2005056691

PATIENT
  Age: 51 Year

DRUGS (3)
  1. CARDURA [Suspect]
     Indication: ILL-DEFINED DISORDER
     Dosage: (8 MB,), ORAL
     Route: 048
     Dates: start: 20040223
  2. LOSARTAN (LOSARTAN) [Concomitant]
  3. BENDROFLUMETHIAZIDE (BENDROFLUMETHIAZIDE) [Concomitant]

REACTIONS (1)
  - PHOTOSENSITIVITY REACTION [None]
